FAERS Safety Report 5268340-4 (Version None)
Quarter: 2007Q1

REPORT INFORMATION
  Report Type: 
  Country: None (occurrence: None)
  Receive Date: 20070315
  Receipt Date: 20070315
  Transmission Date: 20070707
  Serious: Yes (Hospitalization)
  Sender: FDA-Public Use
  Company Number: None

PATIENT
  Age: 67 Year
  Sex: Female
  Weight: 54.4316 kg

DRUGS (1)
  1. LIPITOR [Suspect]
     Indication: LIPIDS
     Dosage: USUAL DOSE - USUAL

REACTIONS (1)
  - MYOSITIS [None]
